FAERS Safety Report 6815339-X (Version None)
Quarter: 2010Q3

REPORT INFORMATION
  Report Type: 
  Country: None (occurrence: None)
  Receive Date: 20100701
  Receipt Date: 20100701
  Transmission Date: 20110219
  Serious: Yes (Hospitalization, Other)
  Sender: FDA-Public Use
  Company Number: None

PATIENT
  Sex: Male
  Weight: 30.391 kg

DRUGS (1)
  1. SOLU-MEDROL [Suspect]
     Indication: URTICARIA
     Dosage: 125 MG ONE TIME IM
     Route: 030
     Dates: start: 20100628

REACTIONS (2)
  - BLOOD PRESSURE DECREASED [None]
  - INJECTION SITE PAIN [None]
